FAERS Safety Report 23293576 (Version 1)
Quarter: 2023Q4

REPORT INFORMATION
  Report Type: Spontaneous
  Country: US (occurrence: None)
  Receive Date: 20231213
  Receipt Date: 20231213
  Transmission Date: 20240109
  Serious: Yes (Other)
  Sender: FDA-Public Use
  Company Number: None

PATIENT
  Age: 57 Year
  Sex: Female
  Weight: 73.8 kg

DRUGS (1)
  1. COSENTYX [Suspect]
     Active Substance: SECUKINUMAB
     Dosage: OTHER FREQUENCY : EVERY 38 DAYS;?
     Route: 058
     Dates: start: 20230703, end: 20231213

REACTIONS (1)
  - Alopecia [None]

NARRATIVE: CASE EVENT DATE: 20231113
